FAERS Safety Report 6410692-3 (Version None)
Quarter: 2009Q4

REPORT INFORMATION
  Report Type: 
  Country: None (occurrence: None)
  Receive Date: 20091014
  Receipt Date: 20091005
  Transmission Date: 20100525
  Serious: Yes (Other)
  Sender: FDA-Public Use
  Company Number: A0810360A

PATIENT
  Age: 29 Year
  Sex: Male

DRUGS (1)
  1. SODIUM FLUORIDE F 18 [Suspect]
     Indication: DENTAL CLEANING
     Dosage: SINGLE DOSE / DENTAL
     Route: 004
     Dates: start: 20091001, end: 20091001

REACTIONS (6)
  - ASTHMA [None]
  - BRONCHOSPASM [None]
  - DRY THROAT [None]
  - HYPOAESTHESIA ORAL [None]
  - OROPHARYNGEAL PAIN [None]
  - RESPIRATORY DISORDER [None]
